FAERS Safety Report 17547568 (Version 2)
Quarter: 2020Q2

REPORT INFORMATION
  Report Type: Report from Study
  Country: GB (occurrence: GB)
  Receive Date: 20200317
  Receipt Date: 20200520
  Transmission Date: 20200713
  Serious: Yes (Other)
  Sender: FDA-Public Use
  Company Number: GB-PRINSTON PHARMACEUTICAL INC.-2020PRN00081

PATIENT
  Age: 45 Year
  Sex: Female

DRUGS (7)
  1. IRBESARTAN. [Suspect]
     Active Substance: IRBESARTAN
     Indication: IGA NEPHROPATHY
     Dosage: 150 MG, 1X/DAY
     Dates: start: 20191109, end: 20191117
  2. PATNOPRAZOLE [Concomitant]
  3. PERINDOPRIL ERBUMINE. [Concomitant]
     Active Substance: PERINDOPRIL ERBUMINE
  4. PARACETAMOL [Concomitant]
     Active Substance: ACETAMINOPHEN
  5. AMLODIPINE [Concomitant]
     Active Substance: AMLODIPINE BESYLATE
     Dosage: 10 MG, 1X/DAY
     Route: 048
     Dates: start: 202001
  6. AMLODIPINE [Concomitant]
     Active Substance: AMLODIPINE BESYLATE
     Dosage: 5 MG, 1X/DAY
     Route: 048
     Dates: end: 202001
  7. IRBESARTAN. [Suspect]
     Active Substance: IRBESARTAN
     Dosage: 300 MG, 1X/DAY
     Dates: start: 20191118, end: 20191202

REACTIONS (8)
  - Headache [Unknown]
  - Abortion spontaneous [Recovered/Resolved]
  - Back pain [Unknown]
  - Nasal discomfort [Unknown]
  - Bacterial test positive [Unknown]
  - Sciatica [Unknown]
  - Off label use [Recovered/Resolved]
  - Oropharyngeal pain [Unknown]

NARRATIVE: CASE EVENT DATE: 20191025
